FAERS Safety Report 6387291-5 (Version None)
Quarter: 2009Q4

REPORT INFORMATION
  Report Type: 
  Country: None (occurrence: None)
  Receive Date: 20091002
  Receipt Date: 20090928
  Transmission Date: 20100525
  Serious: Yes (Hospitalization, Disabling, Other)
  Sender: FDA-Public Use
  Company Number: GB-MERCK-0909GBR00102

PATIENT
  Age: 54 Year
  Sex: Female
  Weight: 66 kg

DRUGS (9)
  1. ZETIA [Suspect]
     Indication: BLOOD CHOLESTEROL INCREASED
     Route: 048
     Dates: start: 20060101
  2. AMITRIPTYLINE HYDROCHLORIDE [Concomitant]
     Route: 048
     Dates: start: 19940101
  3. ASPIRIN [Concomitant]
     Route: 065
     Dates: start: 19940101
  4. ATORVASTATIN [Concomitant]
     Route: 065
     Dates: start: 20040101
  5. LEVOTHYROXINE SODIUM [Concomitant]
     Indication: THYROXINE DECREASED
     Route: 048
     Dates: start: 20050101
  6. METOCLOPRAMIDE [Concomitant]
     Route: 065
     Dates: start: 19940101
  7. ORLISTAT [Concomitant]
     Indication: BLOOD CHOLESTEROL INCREASED
     Route: 048
     Dates: start: 20080101
  8. SENNA [Concomitant]
     Route: 065
     Dates: start: 19940101
  9. DIHYDROCODEINE BITARTRATE [Concomitant]
     Indication: PAIN
     Route: 048
     Dates: start: 19940101

REACTIONS (2)
  - PULMONARY FIBROSIS [None]
  - SPINAL DISORDER [None]
